FAERS Safety Report 5671954-0 (Version None)
Quarter: 2008Q1

REPORT INFORMATION
  Report Type: 
  Country: None (occurrence: None)
  Receive Date: 20080319
  Receipt Date: 20080307
  Transmission Date: 20080703
  Serious: Yes (Death, Hospitalization)
  Sender: FDA-Public Use
  Company Number: FR-WYE-H02144508

PATIENT
  Sex: Female

DRUGS (6)
  1. INIPOMP [Suspect]
     Indication: GASTROOESOPHAGEAL REFLUX DISEASE
     Route: 048
     Dates: start: 20071013, end: 20071021
  2. CARDENSIEL [Suspect]
     Indication: HYPERTENSION
     Route: 048
     Dates: start: 20071012, end: 20071021
  3. RENITEC [Suspect]
     Indication: HYPERTENSION
     Route: 048
     Dates: start: 20071012, end: 20071022
  4. PARACETAMOL [Suspect]
     Dosage: ^DF
     Dates: start: 20071012
  5. AUGMENTIN '125' [Suspect]
     Indication: RESPIRATORY DISORDER
     Route: 048
     Dates: start: 20071013, end: 20071016
  6. ROXITHROMYCIN [Suspect]
     Indication: RESPIRATORY DISORDER
     Route: 048
     Dates: start: 20071012, end: 20071016

REACTIONS (3)
  - DEATH [None]
  - DEPRESSION [None]
  - HEPATIC ENZYME INCREASED [None]
